FAERS Safety Report 13735306 (Version 1)
Quarter: 2017Q3

REPORT INFORMATION
  Report Type: Spontaneous
  Country: US (occurrence: US)
  Receive Date: 20170707
  Receipt Date: 20170707
  Transmission Date: 20171127
  Serious: Yes (Life-Threatening)
  Sender: FDA-Public Use
  Company Number: None

PATIENT
  Age: 58 Year
  Sex: Female
  Weight: 77 kg

DRUGS (1)
  1. EPSOM SALT [Suspect]
     Active Substance: MAGNESIUM SULFATE
     Indication: ANGIOEDEMA
     Dosage: ?          OTHER DOSE:GM;?
     Dates: start: 20170706, end: 20170706

REACTIONS (1)
  - Angioedema [None]

NARRATIVE: CASE EVENT DATE: 20170707
